FAERS Safety Report 10094498 (Version 1)
Quarter: 2014Q2

REPORT INFORMATION
  Report Type: Spontaneous
  Country: US (occurrence: None)
  Receive Date: 20140421
  Receipt Date: 20140421
  Transmission Date: 20141212
  Serious: Yes (Other)
  Sender: FDA-Public Use
  Company Number: None

PATIENT
  Age: 57 Year
  Sex: Male
  Weight: 106.6 kg

DRUGS (1)
  1. LEVOTHYROXINE [Suspect]
     Indication: HYPOTHYROIDISM
     Dosage: 1 PILL ONCE DAILY TAKEN BY MOUTH FOR A LONG TERM.
     Route: 048

REACTIONS (5)
  - Mood swings [None]
  - Nervousness [None]
  - Insomnia [None]
  - Product substitution issue [None]
  - Product quality issue [None]
